FAERS Safety Report 7339668-9 (Version None)
Quarter: 2011Q1

REPORT INFORMATION
  Report Type: 
  Country: None (occurrence: None)
  Receive Date: 20110308
  Receipt Date: 20110224
  Transmission Date: 20110831
  Serious: Yes (Hospitalization, Other)
  Sender: FDA-Public Use
  Company Number: CA-ELI_LILLY_AND_COMPANY-CA201011001423

PATIENT
  Age: 67 Year
  Sex: Female
  Weight: 85 kg

DRUGS (10)
  1. PREDNISONE TAB [Concomitant]
     Dosage: 15 MG, DAILY (1/D)
     Route: 065
  2. ROBAXACET [Concomitant]
     Dosage: UNK, DAILY (1/D)
  3. INSULIN [Concomitant]
     Dosage: UNK, 2/D
     Route: 058
  4. NPH INSULIN [Concomitant]
     Dosage: UNK, 2/D
     Route: 058
  5. FORTEO [Suspect]
     Indication: OSTEOPOROSIS
     Dosage: 20 UG, DAILY (1/D)
     Route: 058
     Dates: start: 20090831
  6. OMEPRAZOLE [Concomitant]
  7. METFORMIN [Concomitant]
  8. GABAPENTIN [Concomitant]
  9. SYNTHROID [Concomitant]
  10. WARFARIN [Concomitant]

REACTIONS (4)
  - VASCULAR INSUFFICIENCY [None]
  - MUSCLE SPASMS [None]
  - POST PROCEDURAL INFECTION [None]
  - LOCALISED INFECTION [None]
